FAERS Safety Report 7191893-6 (Version None)
Quarter: 2010Q4

REPORT INFORMATION
  Report Type: 
  Country: None (occurrence: None)
  Receive Date: 20101223
  Receipt Date: 20101223
  Transmission Date: 20110411
  Serious: Yes (Hospitalization)
  Sender: FDA-Public Use
  Company Number: AU-B.I. PHARMACEUTICALS,INC./RIDGEFIELD-2010-AU-00884AU

PATIENT
  Sex: Female

DRUGS (1)
  1. SPIRIVA [Suspect]
     Route: 048

REACTIONS (2)
  - DEHYDRATION [None]
  - DRUG INEFFECTIVE [None]
